FAERS Safety Report 8560941-0 (Version None)
Quarter: 2012Q3

REPORT INFORMATION
  Report Type: 
  Country: None (occurrence: None)
  Receive Date: 20120802
  Receipt Date: 20120725
  Transmission Date: 20120928
  Serious: Yes (Hospitalization)
  Sender: FDA-Public Use
  Company Number: US-ELI_LILLY_AND_COMPANY-US201205010155

PATIENT
  Sex: Female

DRUGS (1)
  1. FORTEO [Suspect]
     Indication: OSTEOPOROSIS
     Dosage: 20 U, QD
     Route: 058
     Dates: start: 20120112

REACTIONS (4)
  - PATELLA FRACTURE [None]
  - TIBIA FRACTURE [None]
  - FALL [None]
  - MYALGIA [None]
